FAERS Safety Report 19712331 (Version 1)
Quarter: 2021Q3

REPORT INFORMATION
  Report Type: Spontaneous
  Country: ES (occurrence: ES)
  Receive Date: 20210817
  Receipt Date: 20210817
  Transmission Date: 20211014
  Serious: Yes (Other)
  Sender: FDA-Public Use
  Company Number: NVSC2021ES181523

PATIENT
  Age: 47 Year
  Sex: Female

DRUGS (1)
  1. ESTRADERM [Suspect]
     Active Substance: ESTRADIOL
     Indication: PRODUCT USED FOR UNKNOWN INDICATION
     Dosage: 1 DF (ONE PATCH EVERY THREE DAYS)
     Route: 062

REACTIONS (1)
  - Haemorrhage [Unknown]
